FAERS Safety Report 8292282-3 (Version None)
Quarter: 2012Q2

REPORT INFORMATION
  Report Type: 
  Country: None (occurrence: None)
  Receive Date: 20120417
  Receipt Date: 20120404
  Transmission Date: 20120825
  Serious: Yes (Life-Threatening, Hospitalization)
  Sender: FDA-Public Use
  Company Number: CH-FRI-1000029792

PATIENT
  Sex: Male

DRUGS (4)
  1. PAROXETINE [Suspect]
     Indication: DEPRESSION
     Dosage: 80 TABS
     Route: 048
     Dates: start: 20120213, end: 20120213
  2. LORAZEPAM [Suspect]
     Indication: DEPRESSION
     Dosage: 5 TABS
     Route: 048
     Dates: start: 20120213, end: 20120213
  3. ESCITALOPRAM [Suspect]
     Indication: DEPRESSION
     Dosage: 10 MG
     Route: 048
     Dates: start: 20120120, end: 20120212
  4. ZOLPIDEM [Suspect]
     Indication: DEPRESSION
     Dosage: 17 TABS
     Route: 048
     Dates: start: 20120213, end: 20120213

REACTIONS (14)
  - SUICIDE ATTEMPT [None]
  - INTENTIONAL OVERDOSE [None]
  - ELECTROCARDIOGRAM QT PROLONGED [None]
  - MYOCLONUS [None]
  - TREMOR [None]
  - HYPERHIDROSIS [None]
  - AGITATION [None]
  - LOSS OF CONSCIOUSNESS [None]
  - VOMITING [None]
  - SEROTONIN SYNDROME [None]
  - SINUS TACHYCARDIA [None]
  - ANXIETY [None]
  - MUSCLE RIGIDITY [None]
  - HALLUCINATION, AUDITORY [None]
